FAERS Safety Report 8756909 (Version 2)
Quarter: 2012Q4

REPORT INFORMATION
  Report Type: 
  Country: ZA (occurrence: ZA)
  Receive Date: 20120828
  Receipt Date: 20120910
  Transmission Date: 20130627
  Serious: Yes (Hospitalization)
  Sender: FDA-Public Use
  Company Number: ZA-NOVOPROD-358571

PATIENT
  Sex: Male
  Weight: 3.2 kg

DRUGS (4)
  1. LEVEMIR FLEXPEN [Suspect]
     Indication: GESTATIONAL DIABETES
     Dosage: 22 IU, qd
     Route: 064
     Dates: start: 20120520
  2. NOVORAPID FLEXPEN [Suspect]
     Indication: GESTATIONAL DIABETES
     Dosage: 18 IU, qd
     Route: 064
     Dates: start: 20120520
  3. ADALAT [Concomitant]
     Dosage: 60 mg, qd
     Route: 064
     Dates: start: 20120519
  4. CELESTONE                          /00008501/ [Concomitant]
     Dosage: 10.36 mg, qd
     Route: 064
     Dates: start: 20120519, end: 20120520

REACTIONS (3)
  - Premature baby [Recovered/Resolved]
  - Convulsion [Recovered/Resolved]
  - Foetal exposure during pregnancy [Recovered/Resolved]
